FAERS Safety Report 16251384 (Version 1)
Quarter: 2019Q2

REPORT INFORMATION
  Report Type: Spontaneous
  Country: US (occurrence: US)
  Receive Date: 20190426
  Receipt Date: 20190426
  Transmission Date: 20190711
  Serious: Yes (Other)
  Sender: FDA-Public Use
  Company Number: None

PATIENT
  Age: 68 Year
  Sex: Female

DRUGS (1)
  1. NATURE-THROID [Suspect]
     Active Substance: THYROID, PORCINE
     Route: 048

REACTIONS (2)
  - Product prescribing error [None]
  - Incorrect dose administered [None]

NARRATIVE: CASE EVENT DATE: 20190426
